FAERS Safety Report 11089733 (Version 2)
Quarter: 2015Q3

REPORT INFORMATION
  Report Type: Spontaneous
  Country: US (occurrence: US)
  Receive Date: 20150505
  Receipt Date: 20150701
  Transmission Date: 20151125
  Serious: Yes (Life-Threatening, Hospitalization)
  Sender: FDA-Public Use
  Company Number: US-BAYER-2015-185514

PATIENT
  Age: 31 Year
  Sex: Female
  Weight: 57.14 kg

DRUGS (3)
  1. PERCOCET [OXYCODONE HYDROCHLORIDE,OXYCODONE TEREPHTHALATE,PARACETA [Concomitant]
     Dosage: UNK UNK, PRN
     Route: 048
  2. MIRENA [Suspect]
     Active Substance: LEVONORGESTREL
     Dosage: 20 MCG/24HR, CONT
     Route: 015
     Dates: start: 20120831, end: 20121101
  3. CALTRATE WITH VITAMIN D [Concomitant]
     Active Substance: CALCIUM CARBONATE\VITAMIN D
     Route: 048

REACTIONS (5)
  - General physical health deterioration [None]
  - Uterine perforation [None]
  - Abdominal pain lower [None]
  - Pain [None]
  - Injury [None]

NARRATIVE: CASE EVENT DATE: 20121101
